FAERS Safety Report 24118621 (Version 1)
Quarter: 2024Q3

REPORT INFORMATION
  Report Type: Spontaneous
  Country: CA (occurrence: CA)
  Receive Date: 20240722
  Receipt Date: 20240722
  Transmission Date: 20241016
  Serious: Yes (Other)
  Sender: BAUSCH AND LOMB
  Company Number: CA-BAUSCH-BL-2024-010913

PATIENT
  Age: 72 Year
  Sex: Female

DRUGS (23)
  1. METFORMIN [Suspect]
     Active Substance: METFORMIN HYDROCHLORIDE
     Indication: Product used for unknown indication
     Route: 065
  2. AMITRIPTYLINE [Suspect]
     Active Substance: AMITRIPTYLINE
     Indication: Product used for unknown indication
     Route: 065
  3. BETAHISTINE [Suspect]
     Active Substance: BETAHISTINE
     Indication: Product used for unknown indication
     Route: 065
  4. FERROUS SULFATE [Suspect]
     Active Substance: FERROUS SULFATE
     Indication: Product used for unknown indication
     Route: 065
  5. FLUTICASONE PROPIONATE [Suspect]
     Active Substance: FLUTICASONE PROPIONATE
     Indication: Product used for unknown indication
     Route: 065
  6. GABAPENTIN [Suspect]
     Active Substance: GABAPENTIN
     Indication: Product used for unknown indication
     Dosage: NOT SPECIFIED, 4 EVERY 1 DAYS
     Route: 065
  7. INFLUENZA VIRUS VACCINE [Suspect]
     Active Substance: INFLUENZA VIRUS VACCINE
     Indication: Prophylaxis
     Dosage: NOT SPECIFIED
     Route: 065
  8. LIPITOR [Suspect]
     Active Substance: ATORVASTATIN CALCIUM
     Indication: Product used for unknown indication
     Dosage: NOT SPECIFIED
     Route: 065
  9. MEPOLIZUMAB [Suspect]
     Active Substance: MEPOLIZUMAB
     Indication: Asthma
     Route: 058
  10. MEPOLIZUMAB [Suspect]
     Active Substance: MEPOLIZUMAB
     Route: 058
  11. OMNARIS [Suspect]
     Active Substance: CICLESONIDE
     Indication: Nasal congestion
     Dosage: SPRAY, METERED DOSE
     Route: 065
  12. ROPINIROLE HYDROCHLORIDE [Suspect]
     Active Substance: ROPINIROLE HYDROCHLORIDE
     Indication: Product used for unknown indication
     Route: 065
  13. SYNTHROID [Suspect]
     Active Substance: LEVOTHYROXINE SODIUM
     Indication: Product used for unknown indication
     Dosage: NOT SPECIFIED
     Route: 065
  14. TEMAZEPAM [Suspect]
     Active Substance: TEMAZEPAM
     Indication: Product used for unknown indication
     Route: 065
  15. TIOTROPIUM BROMIDE MONOHYDRATE [Suspect]
     Active Substance: TIOTROPIUM BROMIDE MONOHYDRATE
     Indication: Product used for unknown indication
     Dosage: NOT SPECIFIED
     Route: 065
  16. VENTOLIN [Suspect]
     Active Substance: ALBUTEROL SULFATE
     Indication: Product used for unknown indication
     Route: 065
  17. VENTOLIN [Suspect]
     Active Substance: ALBUTEROL SULFATE
     Dosage: NOT SPECIFIED
     Route: 065
  18. ZENHALE [Suspect]
     Active Substance: FORMOTEROL FUMARATE\MOMETASONE FUROATE
     Indication: Product used for unknown indication
     Dosage: AEROSOL, METERED DOSE
     Route: 065
  19. CYMBALTA [Suspect]
     Active Substance: DULOXETINE HYDROCHLORIDE
     Indication: Product used for unknown indication
     Dosage: NOT SPECIFIED
     Route: 065
  20. CANDESARTAN [Suspect]
     Active Substance: CANDESARTAN
     Indication: Product used for unknown indication
     Route: 065
  21. DETROL [Suspect]
     Active Substance: TOLTERODINE TARTRATE
     Indication: Product used for unknown indication
     Route: 065
  22. LANSOPRAZOLE [Suspect]
     Active Substance: LANSOPRAZOLE
     Indication: Gastrooesophageal reflux disease
     Dosage: DELAYED RELEASE
     Route: 065
  23. TYLENOL [Concomitant]
     Active Substance: ACETAMINOPHEN
     Indication: Product used for unknown indication
     Dosage: NOT SPECIFIED

REACTIONS (10)
  - Asthma [Unknown]
  - Atrial fibrillation [Unknown]
  - Back pain [Unknown]
  - Gastrooesophageal reflux disease [Unknown]
  - Hypersensitivity [Unknown]
  - Tachycardia [Unknown]
  - Asthenia [Unknown]
  - Nasal congestion [Unknown]
  - Weight decreased [Unknown]
  - Product use issue [Unknown]
